FAERS Safety Report 6632719-6 (Version None)
Quarter: 2010Q1

REPORT INFORMATION
  Report Type: 
  Country: None (occurrence: None)
  Receive Date: 20100312
  Receipt Date: 20100310
  Transmission Date: 20100710
  Serious: Yes (Other)
  Sender: FDA-Public Use
  Company Number: US-ELI_LILLY_AND_COMPANY-US201003002295

PATIENT
  Sex: Female

DRUGS (5)
  1. HUMULIN 70/30 [Suspect]
     Indication: DIABETES MELLITUS
     Dosage: 24 U, EACH MORNING
     Dates: start: 20090601
  2. HUMULIN 70/30 [Suspect]
     Dosage: 14 U, EACH EVENING
     Dates: start: 20090601
  3. HUMULIN 70/30 [Suspect]
     Dosage: 24 U, EACH MORNING
     Dates: start: 20090601
  4. HUMULIN 70/30 [Suspect]
     Dosage: 14 U, EACH EVENING
     Dates: start: 20090601
  5. ASPIRIN [Concomitant]
     Dosage: 81 MG, DAILY (1/D)

REACTIONS (2)
  - INJECTION SITE HAEMATOMA [None]
  - SURGERY [None]
